FAERS Safety Report 18138850 (Version 2)
Quarter: 2020Q3

REPORT INFORMATION
  Report Type: Spontaneous
  Country: US (occurrence: US)
  Receive Date: 20200812
  Receipt Date: 20200819
  Transmission Date: 20201103
  Serious: Yes (Death, Other)
  Sender: FDA-Public Use
  Company Number: US-AUROBINDO-AUR-APL-2020-038496

PATIENT
  Age: 55 Year
  Sex: Male

DRUGS (6)
  1. MACITENTAN [Suspect]
     Active Substance: MACITENTAN
     Indication: PULMONARY HYPERTENSION
     Dosage: 10 MILLIGRAM, ONCE A DAY
     Route: 065
  2. EPOPROSTENOL. [Suspect]
     Active Substance: EPOPROSTENOL
     Dosage: 8 NG/KG/MIN
     Route: 042
  3. SILDENAFIL. [Suspect]
     Active Substance: SILDENAFIL
     Indication: PULMONARY HYPERTENSION
     Dosage: 20 MILLIGRAM, 3 TIMES A DAY
     Route: 065
  4. MILRINONE [Suspect]
     Active Substance: MILRINONE
     Indication: PULMONARY HYPERTENSION
     Dosage: UNK
     Route: 065
  5. EPOPROSTENOL. [Suspect]
     Active Substance: EPOPROSTENOL
     Dosage: 2 NG/KG/MIN LOW?DOSE
     Route: 042
  6. EPOPROSTENOL. [Suspect]
     Active Substance: EPOPROSTENOL
     Indication: CARDIAC OUTPUT
     Dosage: UNK
     Route: 065

REACTIONS (1)
  - Pulmonary veno-occlusive disease [Fatal]
